FAERS Safety Report 5342650-4 (Version None)
Quarter: 2007Q2

REPORT INFORMATION
  Report Type: 
  Country: None (occurrence: None)
  Receive Date: 20070601
  Receipt Date: 20070522
  Transmission Date: 20071010
  Serious: Yes (Other)
  Sender: FDA-Public Use
  Company Number: US-PFIZER INC-2007038958

PATIENT
  Sex: Female
  Weight: 59 kg

DRUGS (6)
  1. LIPITOR [Suspect]
     Indication: BLOOD CHOLESTEROL INCREASED
     Dates: start: 20000101, end: 20070201
  2. TENORMIN [Concomitant]
     Indication: HYPERTENSION
  3. VALSARTAN [Concomitant]
  4. ACETYLSALICYLIC ACID SRT [Concomitant]
  5. MULTIVITAMIN [Concomitant]
  6. MIRAPEX [Concomitant]

REACTIONS (4)
  - GAIT DISTURBANCE [None]
  - MUSCULAR WEAKNESS [None]
  - MYALGIA [None]
  - RESTLESS LEGS SYNDROME [None]
